FAERS Safety Report 20317068 (Version 1)
Quarter: 2022Q1

REPORT INFORMATION
  Report Type: Spontaneous
  Country: CN (occurrence: None)
  Receive Date: 20220110
  Receipt Date: 20220110
  Transmission Date: 20220423
  Serious: No
  Sender: FDA-Public Use
  Company Number: 2021A899845

PATIENT
  Age: 57 Year
  Sex: Male

DRUGS (1)
  1. SYMBICORT [Suspect]
     Active Substance: BUDESONIDE\FORMOTEROL FUMARATE DIHYDRATE
     Indication: Lung disorder
     Dosage: TWO INHALATIONS OF SYMBICORT A DAY, ONCE IN THE MORNING AND ONCE IN THE EVENING.
     Route: 055

REACTIONS (4)
  - Nasopharyngitis [Unknown]
  - Hypophagia [Unknown]
  - Device delivery system issue [Unknown]
  - Drug ineffective [Unknown]
